FAERS Safety Report 6042491-9 (Version None)
Quarter: 2009Q1

REPORT INFORMATION
  Report Type: 
  Country: None (occurrence: None)
  Receive Date: 20090116
  Receipt Date: 20080926
  Transmission Date: 20090719
  Serious: No
  Sender: FDA-Public Use
  Company Number: US-ABBOTT-08P-163-0448313-00

PATIENT
  Sex: Male

DRUGS (5)
  1. TEVETEN [Suspect]
     Indication: DRUG USE FOR UNKNOWN INDICATION
     Route: 048
     Dates: start: 19960101
  2. TEVETEN [Suspect]
     Route: 048
     Dates: start: 20080421
  3. TEVETEN [Suspect]
     Dosage: ONE AND A HALF PILLS DAILY
  4. TEVETEN [Suspect]
  5. AMLODIPINE BESYLATE [Concomitant]
     Indication: DRUG USE FOR UNKNOWN INDICATION

REACTIONS (4)
  - ASTHENIA [None]
  - BLOOD PRESSURE DECREASED [None]
  - BLOOD PRESSURE INCREASED [None]
  - UNEVALUABLE EVENT [None]
